APPROVED DRUG PRODUCT: IYUZEH
Active Ingredient: LATANOPROST
Strength: 0.005%
Dosage Form/Route: SOLUTION/DROPS;OPHTHALMIC
Application: N216472 | Product #001
Applicant: THEA PHARMA INC
Approved: Dec 13, 2022 | RLD: Yes | RS: Yes | Type: RX

PATENTS:
Patent 8637054 | Expires: Jul 8, 2031